FAERS Safety Report 6457149-1 (Version None)
Quarter: 2009Q4

REPORT INFORMATION
  Report Type: 
  Country: None (occurrence: None)
  Receive Date: 20091125
  Receipt Date: 20091120
  Transmission Date: 20100525
  Serious: Yes (Disabling)
  Sender: FDA-Public Use
  Company Number: B0607681A

PATIENT
  Age: 28 Year
  Sex: Female
  Weight: 54 kg

DRUGS (2)
  1. SERETIDE [Suspect]
     Route: 065
     Dates: start: 20070101, end: 20091014
  2. MONTELUKAST SODIUM [Concomitant]
     Dates: start: 20070101, end: 20091014

REACTIONS (1)
  - MYDRIASIS [None]
